FAERS Safety Report 4596274-7 (Version None)
Quarter: 2005Q1

REPORT INFORMATION
  Report Type: 
  Country: None (occurrence: None)
  Receive Date: 20050228
  Receipt Date: 20050214
  Transmission Date: 20050727
  Serious: Yes (Other)
  Sender: FDA-Public Use
  Company Number: 2005030822

PATIENT
  Age: 40 Year
  Sex: Female
  Weight: 72.5755 kg

DRUGS (3)
  1. SUDAFED PE (PHENYLEPHRINE) [Suspect]
     Indication: NASOPHARYNGITIS
     Dosage: 1 TABLET EVERY 4 HOURS, ORAL
     Route: 048
     Dates: start: 20050211, end: 20050214
  2. ROBITUSSIN-PE (ETHANOL, GUAIFENESIN, PSEUDOEPHEDRINE HYDROCHLORIDE) [Concomitant]
  3. ANTIDEPRESSANTS (ANTIDEPRESSANTS) [Concomitant]

REACTIONS (2)
  - BACK PAIN [None]
  - DYSURIA [None]
